FAERS Safety Report 23426127 (Version 1)
Quarter: 2024Q1

REPORT INFORMATION
  Report Type: Spontaneous
  Country: JP (occurrence: JP)
  Receive Date: 20240122
  Receipt Date: 20240122
  Transmission Date: 20240409
  Serious: Yes (Other)
  Sender: FDA-Public Use
  Company Number: JP-BRISTOL-MYERS SQUIBB COMPANY-2024-009370

PATIENT
  Age: 70 Year
  Sex: Male

DRUGS (11)
  1. LENADEX [Suspect]
     Active Substance: DEXAMETHASONE ACETATE
     Indication: Diffuse large B-cell lymphoma
     Dates: start: 2019, end: 2019
  2. REVLIMID [Suspect]
     Active Substance: LENALIDOMIDE
     Indication: Diffuse large B-cell lymphoma
     Dates: start: 2019, end: 2019
  3. IFOSFAMIDE [Suspect]
     Active Substance: IFOSFAMIDE
     Indication: Diffuse large B-cell lymphoma
     Dates: start: 2019, end: 2019
  4. CISPLATIN [Suspect]
     Active Substance: CISPLATIN
     Indication: Diffuse large B-cell lymphoma
     Dates: start: 2019, end: 2019
  5. ETOPOSIDE [Suspect]
     Active Substance: ETOPOSIDE
     Indication: Diffuse large B-cell lymphoma
     Dates: start: 2019, end: 2019
  6. CYTARABINE [Suspect]
     Active Substance: CYTARABINE
     Indication: Diffuse large B-cell lymphoma
     Dates: start: 2019, end: 2019
  7. GEMCITABINE [Suspect]
     Active Substance: GEMCITABINE
     Indication: Diffuse large B-cell lymphoma
     Dates: start: 2019, end: 2019
  8. CARBOPLATIN [Suspect]
     Active Substance: CARBOPLATIN
     Indication: Diffuse large B-cell lymphoma
     Dates: start: 2019, end: 2019
  9. CYCLOPHOSPHAMIDE [Suspect]
     Active Substance: CYCLOPHOSPHAMIDE
     Indication: Diffuse large B-cell lymphoma
     Dosage: 250MG/M2 X 3D
     Dates: start: 2019
  10. FLUDARABINE [Suspect]
     Active Substance: FLUDARABINE PHOSPHATE
     Indication: Diffuse large B-cell lymphoma
     Dosage: 25MG/M2 X 3D
     Dates: start: 2019
  11. KYMRIAH [Suspect]
     Active Substance: TISAGENLECLEUCEL
     Indication: Diffuse large B-cell lymphoma
     Dates: start: 2019

REACTIONS (2)
  - Cytokine release syndrome [Unknown]
  - Product use in unapproved indication [Unknown]

NARRATIVE: CASE EVENT DATE: 20190101
